FAERS Safety Report 19403637 (Version 1)
Quarter: 2021Q2

REPORT INFORMATION
  Report Type: Spontaneous
  Country: IT (occurrence: IT)
  Receive Date: 20210610
  Receipt Date: 20210610
  Transmission Date: 20210717
  Serious: Yes (Hospitalization)
  Sender: FDA-Public Use
  Company Number: IT-ROCHE-2844104

PATIENT
  Age: 73 Year
  Sex: Female
  Weight: 53 kg

DRUGS (3)
  1. COMIRNATY [Concomitant]
     Active Substance: TOZINAMERAN
     Indication: COVID-19 IMMUNISATION
     Route: 030
     Dates: start: 20210419, end: 20210419
  2. ABRAXANE [Concomitant]
     Active Substance: PACLITAXEL
     Indication: BREAST CANCER
     Route: 042
     Dates: start: 20210412
  3. TECENTRIQ [Suspect]
     Active Substance: ATEZOLIZUMAB
     Indication: BREAST CANCER
     Route: 042
     Dates: start: 20210412

REACTIONS (1)
  - Mesenteric panniculitis [Recovered/Resolved]

NARRATIVE: CASE EVENT DATE: 20210427
